FAERS Safety Report 7634683-X (Version None)
Quarter: 2011Q3

REPORT INFORMATION
  Report Type: 
  Country: None (occurrence: None)
  Receive Date: 20110725
  Receipt Date: 20091122
  Transmission Date: 20111222
  Serious: Yes (Other)
  Sender: FDA-Public Use
  Company Number: US-BAYER-200940207NA

PATIENT
  Age: 68 Year
  Sex: Male
  Weight: 109 kg

DRUGS (17)
  1. LASIX [Concomitant]
     Dosage: 40 MG, QD
     Route: 048
     Dates: start: 20060905
  2. TRASYLOL [Suspect]
     Dosage: LOADING DOSE - 200ML THEN 50CC/HR
  3. NIPRIDE [Concomitant]
     Dosage: UNK
     Route: 042
     Dates: start: 20060823, end: 20060823
  4. HEPARIN [Concomitant]
     Dosage: 28,000 UNITS
     Route: 042
     Dates: start: 20060823, end: 20060823
  5. LABETALOL HCL [Concomitant]
     Dosage: 20 MG, Q4HR
     Route: 048
     Dates: start: 20060905
  6. HEPARIN [Concomitant]
     Dosage: 10,000 UNITS
  7. PROTONIX [Concomitant]
     Dosage: 40 MG, QD
     Route: 048
     Dates: start: 20060905
  8. ACETYLSALICYLIC ACID SRT [Concomitant]
     Dosage: 325 MG, QD
     Route: 048
     Dates: start: 20060905
  9. NITROGLYCERIN [Concomitant]
     Dosage: UNK
     Route: 042
     Dates: start: 20060823, end: 20060823
  10. MORPHINE [Concomitant]
     Dosage: 20MG
     Route: 042
     Dates: start: 20060823, end: 20060823
  11. TRASYLOL [Suspect]
     Indication: PRODUCT USED FOR UNKNOWN INDICATION
     Dosage: TEST DOSE- 1ML , OTHER 200ML
     Route: 042
     Dates: start: 20060823, end: 20060823
  12. POTASSIUM CHLORIDE [Concomitant]
     Dosage: 20 MG, QD
     Route: 048
     Dates: start: 20060905
  13. ALBUMIN (HUMAN) [Concomitant]
     Dosage: UNK
     Route: 042
     Dates: start: 20060823, end: 20060823
  14. ZOCOR [Concomitant]
     Dosage: 40 MG, HS
     Route: 048
     Dates: start: 20060905
  15. PLASMALYTE [GLUCOSE,POTASSIUM CHLORIDE] [Concomitant]
     Dosage: 1200 MILLITERS
     Route: 042
     Dates: start: 20060823, end: 20060823
  16. FENTANYL [Concomitant]
     Dosage: 5MG
     Route: 042
     Dates: start: 20060823, end: 20060823
  17. ETOMIDATE [Concomitant]
     Dosage: UNK
     Route: 042
     Dates: start: 20060823, end: 20060823

REACTIONS (12)
  - RENAL FAILURE [None]
  - RENAL INJURY [None]
  - EMOTIONAL DISTRESS [None]
  - STRESS [None]
  - FEAR [None]
  - RENAL IMPAIRMENT [None]
  - ANXIETY [None]
  - INJURY [None]
  - UNEVALUABLE EVENT [None]
  - PAIN [None]
  - ANHEDONIA [None]
  - PSYCHIATRIC SYMPTOM [None]
